FAERS Safety Report 4407028-6 (Version None)
Quarter: 2004Q3

REPORT INFORMATION
  Report Type: 
  Country: None (occurrence: None)
  Receive Date: 20040724
  Receipt Date: 20040716
  Transmission Date: 20050211
  Serious: Yes (Hospitalization)
  Sender: FDA-Public Use
  Company Number: PHBS2004JP09648

PATIENT
  Age: 64 Year
  Sex: Male
  Weight: 49 kg

DRUGS (2)
  1. CYCLOSPORINE [Suspect]
     Indication: STEM CELL TRANSPLANT
     Dosage: UNK, UNK
     Route: 048
     Dates: end: 20040406
  2. CYCLOSPORINE [Suspect]
     Dosage: 50 MG/D
     Route: 048
     Dates: start: 20040622

REACTIONS (6)
  - CRYPTOGENIC ORGANIZING PNEUMONIA [None]
  - DYSPNOEA [None]
  - GRAFT VERSUS HOST DISEASE [None]
  - HYPOXIA [None]
  - INTERSTITIAL LUNG DISEASE [None]
  - WEIGHT DECREASED [None]
